FAERS Safety Report 14269575 (Version 3)
Quarter: 2018Q1

REPORT INFORMATION
  Report Type: Report from Study
  Country: None (occurrence: GB)
  Receive Date: 20171211
  Receipt Date: 20180111
  Transmission Date: 20180508
  Serious: Yes (Hospitalization)
  Sender: FDA-Public Use
  Company Number: GB-ABBVIE-17K-167-2188067-00

PATIENT
  Age: 68 Year
  Sex: Male

DRUGS (2)
  1. DUODOPA [Suspect]
     Active Substance: CARBIDOPA\LEVODOPA
     Indication: PARKINSON^S DISEASE
     Dosage: 100ML CASSETTE
     Route: 050
     Dates: end: 20171228
  2. DUODOPA [Suspect]
     Active Substance: CARBIDOPA\LEVODOPA
     Dosage: 100ML CASSETTE
     Route: 050

REACTIONS (4)
  - Pneumonia aspiration [Unknown]
  - General physical health deterioration [Unknown]
  - Sepsis [Unknown]
  - Device occlusion [Unknown]

NARRATIVE: CASE EVENT DATE: 20171229
